FAERS Safety Report 8416447-2 (Version None)
Quarter: 2012Q2

REPORT INFORMATION
  Report Type: 
  Country: None (occurrence: None)
  Receive Date: 20120606
  Receipt Date: 20120528
  Transmission Date: 20120825
  Serious: Yes (Other)
  Sender: FDA-Public Use
  Company Number: CN-ASTRAZENECA-2012SE32759

PATIENT
  Age: 8 Year
  Sex: Male

DRUGS (2)
  1. SYMBICORT [Suspect]
     Indication: ASTHMA
     Dosage: 2 SPRAYS TWO TIMES A DAY
     Route: 055
     Dates: start: 20110101
  2. MONTELUKAST SODIUM [Concomitant]
     Indication: RHINITIS ALLERGIC
     Route: 048

REACTIONS (2)
  - VITREOUS DISORDER [None]
  - MYOPIA [None]
